FAERS Safety Report 9526861 (Version 1)
Quarter: 2013Q1

REPORT INFORMATION
  Report Type: Spontaneous
  Country: US (occurrence: None)
  Receive Date: 20130311
  Receipt Date: 20130311
  Transmission Date: 20140127
  Serious: No
  Sender: FDA-Public Use
  Company Number: 1211USA006244

PATIENT
  Sex: Female

DRUGS (1)
  1. ZIOPTAN [Suspect]
     Indication: GLAUCOMA

REACTIONS (7)
  - Eye swelling [None]
  - Conjunctivitis [None]
  - Ocular hyperaemia [None]
  - Eye pain [None]
  - Photophobia [None]
  - Lacrimation increased [None]
  - Vision blurred [None]
